FAERS Safety Report 5551721-9 (Version None)
Quarter: 2007Q4

REPORT INFORMATION
  Report Type: 
  Country: None (occurrence: None)
  Receive Date: 20071129
  Receipt Date: 20070613
  Transmission Date: 20080405
  Serious: Yes (Other)
  Sender: FDA-Public Use
  Company Number: US200609002133

PATIENT
  Age: 44 Year
  Sex: Male
  Weight: 128.8 kg

DRUGS (2)
  1. ZYPREXA [Suspect]
     Indication: SCHIZOPHRENIA
     Dosage: 5 MG, ORAL; 10 MG; 20 MGL 25 MG; 30 MG; 35 MG; 40 MG; 45 MG
     Route: 048
     Dates: start: 19970606, end: 20050520
  2. PREDNISONE [Concomitant]

REACTIONS (7)
  - BLOOD TRIGLYCERIDES INCREASED [None]
  - HYPERTENSION [None]
  - OVERDOSE [None]
  - TYPE 1 DIABETES MELLITUS [None]
  - TYPE 2 DIABETES MELLITUS [None]
  - VISUAL DISTURBANCE [None]
  - WEIGHT INCREASED [None]
